FAERS Safety Report 8024526-7 (Version None)
Quarter: 2012Q1

REPORT INFORMATION
  Report Type: 
  Country: None (occurrence: None)
  Receive Date: 20120105
  Receipt Date: 20120102
  Transmission Date: 20120608
  Serious: Yes (Life-Threatening, Hospitalization, Other)
  Sender: FDA-Public Use
  Company Number: PHHY2011FR102519

PATIENT
  Sex: Female
  Weight: 66 kg

DRUGS (4)
  1. GLEEVEC [Suspect]
     Indication: CHRONIC MYELOID LEUKAEMIA
     Dosage: 1 DF, DAILY
     Route: 048
     Dates: start: 20101124, end: 20110107
  2. BISOPROLOL FUMARATE [Concomitant]
     Indication: HYPERTENSION
     Dosage: 5 MG PER DAY
     Route: 048
  3. BISOPROLOL FUMARATE [Concomitant]
     Dosage: 10 MG, QD
  4. ASPIRIN [Concomitant]
     Dosage: 75 MG, TWICE A WEEK
     Route: 048

REACTIONS (6)
  - ANAEMIA [None]
  - PLATELET COUNT INCREASED [None]
  - AGRANULOCYTOSIS [None]
  - PYREXIA [None]
  - DYSPEPSIA [None]
  - HAEMOGLOBIN DECREASED [None]
